FAERS Safety Report 16981034 (Version 1)
Quarter: 2019Q4

REPORT INFORMATION
  Report Type: Spontaneous
  Country: BR (occurrence: BR)
  Receive Date: 20191031
  Receipt Date: 20191031
  Transmission Date: 20200122
  Serious: Yes (Hospitalization)
  Sender: FDA-Public Use
  Company Number: BR-PURDUE-GBR-2019-0072161

PATIENT
  Age: 69 Year
  Sex: Male

DRUGS (2)
  1. RESTIVA [Suspect]
     Active Substance: BUPRENORPHINE
     Indication: PAIN
     Dosage: 1 PATCH, WEEKLY [STRENGTH 10 MG]
     Route: 062
     Dates: start: 20190923
  2. OXYCONTIN [Suspect]
     Active Substance: OXYCODONE HYDROCHLORIDE
     Indication: PAIN
     Dosage: 1 TABLET, Q12H [STRENGTH 10 MG]
     Route: 048
     Dates: start: 20190923

REACTIONS (2)
  - Drug ineffective [Unknown]
  - Movement disorder [Unknown]

NARRATIVE: CASE EVENT DATE: 20191018
